FAERS Safety Report 8572369-8 (Version None)
Quarter: 2012Q2

REPORT INFORMATION
  Report Type: 
  Country: None (occurrence: None)
  Receive Date: 20120419
  Receipt Date: 20120419
  Transmission Date: 20120825
  Serious: Yes (Hospitalization, Other)
  Sender: FDA-Public Use
  Company Number: ALL1-2011-03963

PATIENT
  Age: 46 Year
  Sex: Female
  Weight: 79.4 kg

DRUGS (6)
  1. LOMOTIL [Concomitant]
  2. HYDROCHLOROTHIAZIDE [Concomitant]
  3. LIALDA [Suspect]
     Indication: COLITIS ULCERATIVE
     Dosage: 1.2 G 4X/DAY: QID, ORAL
     Route: 048
     Dates: start: 20100101, end: 20110801
  4. METOPROLOL TARTRATE [Concomitant]
  5. RANITIDINE HYDROCHLORIDE [Concomitant]
  6. CELEXA [Concomitant]

REACTIONS (3)
  - COLITIS [None]
  - INAPPROPRIATE SCHEDULE OF DRUG ADMINISTRATION [None]
  - DIABETES MELLITUS [None]
